FAERS Safety Report 7724007-1 (Version None)
Quarter: 2011Q3

REPORT INFORMATION
  Report Type: 
  Country: None (occurrence: None)
  Receive Date: 20110901
  Receipt Date: 20110825
  Transmission Date: 20111222
  Serious: Yes (Death)
  Sender: FDA-Public Use
  Company Number: US-SANOFI-AVENTIS-2011SA054847

PATIENT
  Age: 69 Year
  Sex: Male
  Weight: 87.2 kg

DRUGS (2)
  1. INSULIN GLARGINE [Suspect]
     Indication: TYPE 2 DIABETES MELLITUS
     Dosage: DOSE:42 UNIT(S)
     Dates: start: 20101220, end: 20110529
  2. INSULIN LISPRO [Suspect]
     Indication: TYPE 2 DIABETES MELLITUS
     Dosage: 9 U PRE BREAKFAST , 7 U PRE DINNER, OTHER, SUBCUTANEOUS
     Dates: start: 20101220, end: 20110530

REACTIONS (1)
  - ROAD TRAFFIC ACCIDENT [None]
